FAERS Safety Report 8175865-0 (Version None)
Quarter: 2012Q1

REPORT INFORMATION
  Report Type: 
  Country: None (occurrence: None)
  Receive Date: 20120228
  Receipt Date: 20120216
  Transmission Date: 20120608
  Serious: Yes (Death, Other)
  Sender: FDA-Public Use
  Company Number: 2012SP008923

PATIENT
  Age: 48 Year
  Sex: Male
  Weight: 95 kg

DRUGS (3)
  1. TEMODAL [Suspect]
     Indication: PRODUCT USED FOR UNKNOWN INDICATION
     Dosage: 150 MG;PO
     Route: 048
     Dates: start: 20120117, end: 20120119
  2. EPDANTOIN [Concomitant]
  3. DEKORT /00016001/ [Concomitant]

REACTIONS (1)
  - PULMONARY EMBOLISM [None]
